FAERS Safety Report 7401841-9 (Version None)
Quarter: 2011Q1

REPORT INFORMATION
  Report Type: 
  Country: None (occurrence: None)
  Receive Date: 20110301
  Receipt Date: 20100619
  Transmission Date: 20110831
  Serious: Yes (Other)
  Sender: FDA-Public Use
  Company Number: US-JNJFOC-20100606255

PATIENT
  Sex: Male

DRUGS (2)
  1. CONCENTRATED TYLENOL INFANT DROPS [Suspect]
     Indication: TEETHING
  2. CONCENTRATED MOTRIN INFANTS DROPS [Suspect]
     Indication: TEETHING
     Dates: end: 20100618

REACTIONS (3)
  - HAEMATOCHEZIA [None]
  - ABDOMINAL PAIN UPPER [None]
  - PRODUCT QUALITY ISSUE [None]
